FAERS Safety Report 24006269 (Version 1)
Quarter: 2024Q2

REPORT INFORMATION
  Report Type: Spontaneous
  Country: US (occurrence: US)
  Receive Date: 20240624
  Receipt Date: 20240624
  Transmission Date: 20240716
  Serious: Yes (Other)
  Sender: FDA-Public Use
  Company Number: US-PFIZER INC-202400198691

PATIENT
  Age: 52 Year
  Sex: Female

DRUGS (1)
  1. IBRANCE [Suspect]
     Active Substance: PALBOCICLIB
     Dosage: 75 MG (1 CAPSULE), DAILY
     Route: 048
     Dates: start: 20220917

REACTIONS (4)
  - Neutropenia [Unknown]
  - Fatigue [Unknown]
  - Chills [Unknown]
  - Hyperhidrosis [Unknown]
